FAERS Safety Report 7352017-5 (Version None)
Quarter: 2011Q1

REPORT INFORMATION
  Report Type: 
  Country: None (occurrence: None)
  Receive Date: 20110315
  Receipt Date: 20110309
  Transmission Date: 20110831
  Serious: Yes (Other)
  Sender: FDA-Public Use
  Company Number: US-PFIZER INC-2011052906

PATIENT
  Age: 8 Year

DRUGS (3)
  1. ABILIFY [Concomitant]
     Dosage: 1 MG, UNK
  2. ZOLOFT [Suspect]
     Dosage: 50 MG, UNK
  3. ZOLOFT [Suspect]
     Dosage: 25 MG, UNK

REACTIONS (2)
  - ACTIVATION SYNDROME [None]
  - RASH GENERALISED [None]
